FAERS Safety Report 4594612-2 (Version None)
Quarter: 2005Q1

REPORT INFORMATION
  Report Type: 
  Country: None (occurrence: None)
  Receive Date: 20050301
  Receipt Date: 20041102
  Transmission Date: 20050727
  Serious: Yes (Other)
  Sender: FDA-Public Use
  Company Number: US-BRISTOL-MYERS SQUIBB COMPANY-12753992

PATIENT
  Age: 56 Year
  Sex: Male
  Weight: 78 kg

DRUGS (9)
  1. ERBITUX [Suspect]
     Indication: COLON CANCER METASTATIC
     Dosage: 1ST DOSE 14-OCT-04 (400 MG/M2), 330 MG ON 26-OCT-04
     Route: 042
     Dates: start: 20041014, end: 20041014
  2. BENADRYL [Concomitant]
     Indication: PREMEDICATION
     Route: 042
     Dates: start: 20041014, end: 20041014
  3. DECADRON [Concomitant]
     Indication: PREMEDICATION
     Dates: start: 20041014, end: 20041014
  4. ALOXI [Concomitant]
     Indication: PREMEDICATION
     Dates: start: 20041014, end: 20041014
  5. ATROPINE [Concomitant]
     Indication: PREMEDICATION
     Dates: start: 20041014, end: 20041014
  6. TOPROL-XL [Concomitant]
  7. ZANTAC [Concomitant]
  8. DURAGESIC PATCH [Concomitant]
  9. NEURONTIN [Concomitant]

REACTIONS (2)
  - PRURITUS [None]
  - RASH PRURITIC [None]
